FAERS Safety Report 15170723 (Version 2)
Quarter: 2018Q3

REPORT INFORMATION
  Report Type: Spontaneous
  Country: FR (occurrence: FR)
  Receive Date: 20180720
  Receipt Date: 20180929
  Transmission Date: 20181010
  Serious: Yes (Hospitalization, Other)
  Sender: FDA-Public Use
  Company Number: FR-BRISTOL-MYERS SQUIBB COMPANY-BMS-2018-066708

PATIENT
  Sex: Female
  Weight: 47 kg

DRUGS (2)
  1. NIVOLUMAB [Suspect]
     Active Substance: NIVOLUMAB
     Indication: HODGKIN^S DISEASE
     Dosage: 3 MG/KG, Q2WK
     Route: 042
     Dates: start: 20160525, end: 20171018
  2. NIVOLUMAB [Suspect]
     Active Substance: NIVOLUMAB
     Indication: PRODUCT USED FOR UNKNOWN INDICATION
     Dosage: UNK
     Route: 065
     Dates: start: 20180613

REACTIONS (6)
  - Pulmonary hypertension [Unknown]
  - Right ventricular dysfunction [Unknown]
  - Abdominal lymphadenopathy [Unknown]
  - Pericarditis [Not Recovered/Not Resolved]
  - Pyrexia [Unknown]
  - Hodgkin^s disease [Unknown]
